FAERS Safety Report 24617404 (Version 2)
Quarter: 2024Q4

REPORT INFORMATION
  Report Type: Spontaneous
  Country: US (occurrence: US)
  Receive Date: 20241114
  Receipt Date: 20241210
  Transmission Date: 20250115
  Serious: No
  Sender: CSL BEHRING
  Company Number: US-BEH-2024183209

PATIENT
  Sex: Female

DRUGS (3)
  1. HIZENTRA [Suspect]
     Active Substance: HUMAN IMMUNOGLOBULIN G
     Indication: Immunodeficiency common variable
     Dosage: 12 G, QW (4G TOTAL)
     Route: 058
     Dates: start: 202410
  2. EPINEPHRINE [Concomitant]
     Active Substance: EPINEPHRINE
  3. GAMUNEX-C [Concomitant]
     Active Substance: HUMAN IMMUNOGLOBULIN G
     Dosage: (40GM/400ML)

REACTIONS (5)
  - Illness [Unknown]
  - Decreased appetite [Unknown]
  - Infusion site erythema [Unknown]
  - Infusion site swelling [Unknown]
  - Decreased appetite [Unknown]
